FAERS Safety Report 6397788-X (Version None)
Quarter: 2009Q4

REPORT INFORMATION
  Report Type: 
  Country: None (occurrence: None)
  Receive Date: 20091012
  Receipt Date: 20091001
  Transmission Date: 20100525
  Serious: Yes (Hospitalization)
  Sender: FDA-Public Use
  Company Number: US-CELGENEUS-163-21880-09100192

PATIENT
  Sex: Female

DRUGS (2)
  1. REVLIMID [Suspect]
     Route: 048
     Dates: start: 20081124, end: 20090907
  2. REVLIMID [Suspect]
     Route: 048
     Dates: start: 20090921

REACTIONS (4)
  - NAUSEA [None]
  - RENAL DISORDER [None]
  - VOMITING [None]
  - WHITE BLOOD CELL COUNT DECREASED [None]
